FAERS Safety Report 5765605-4 (Version None)
Quarter: 2008Q2

REPORT INFORMATION
  Report Type: 
  Country: None (occurrence: None)
  Receive Date: 20080611
  Receipt Date: 20080603
  Transmission Date: 20081010
  Serious: Yes (Other)
  Sender: FDA-Public Use
  Company Number: US-AVENTIS-200813495US

PATIENT

DRUGS (3)
  1. LOVENOX [Suspect]
     Indication: ATRIAL FIBRILLATION
     Dosage: DOSE: UNK
     Route: 051
  2. LOVENOX [Suspect]
     Dosage: DOSE: UNK
     Route: 051
  3. COUMADIN [Concomitant]
     Dosage: DOSE: UNK

REACTIONS (2)
  - CARDIAC TAMPONADE [None]
  - HAEMORRHAGE [None]
